FAERS Safety Report 6124166-0 (Version None)
Quarter: 2009Q1

REPORT INFORMATION
  Report Type: 
  Country: None (occurrence: None)
  Receive Date: 20090319
  Receipt Date: 20090311
  Transmission Date: 20090719
  Serious: Yes (Other)
  Sender: FDA-Public Use
  Company Number: DE-JNJFOC-20090204966

PATIENT
  Sex: Male
  Weight: 90 kg

DRUGS (3)
  1. REMINYL [Suspect]
     Indication: DEMENTIA
     Route: 065
  2. LORZAAR [Concomitant]
     Route: 048
  3. REPAGLINIDE [Concomitant]
     Route: 048

REACTIONS (1)
  - ARRHYTHMIA [None]
